FAERS Safety Report 5623578-9 (Version None)
Quarter: 2008Q1

REPORT INFORMATION
  Report Type: 
  Country: None (occurrence: None)
  Receive Date: 20080212
  Receipt Date: 20080204
  Transmission Date: 20080703
  Serious: Yes (Other)
  Sender: FDA-Public Use
  Company Number: JP-ELI_LILLY_AND_COMPANY-JP200802001273

PATIENT
  Age: 55 Year
  Sex: Male

DRUGS (6)
  1. HUMALOG [Suspect]
     Route: 058
     Dates: start: 20020101
  2. HUMALOG [Suspect]
     Dosage: 900 U, UNK
     Route: 058
     Dates: start: 20080123, end: 20080123
  3. HUMALOG [Suspect]
     Route: 058
  4. HUMALOG [Suspect]
     Route: 058
     Dates: start: 20020101
  5. HUMALOG [Suspect]
     Dosage: 600 U, UNK
     Route: 058
     Dates: start: 20080123, end: 20080123
  6. HUMALOG [Suspect]
     Route: 058

REACTIONS (3)
  - HYPOGLYCAEMIA [None]
  - INTENTIONAL OVERDOSE [None]
  - SUICIDE ATTEMPT [None]
